FAERS Safety Report 5499028-2 (Version None)
Quarter: 2007Q4

REPORT INFORMATION
  Report Type: 
  Country: None (occurrence: None)
  Receive Date: 20071026
  Receipt Date: 20070518
  Transmission Date: 20080405
  Serious: No
  Sender: FDA-Public Use
  Company Number: A0652032A

PATIENT
  Sex: Male

DRUGS (7)
  1. ADVAIR DISKUS 100/50 [Suspect]
     Indication: EMPHYSEMA
     Dosage: 1PUFF TWICE PER DAY
     Route: 055
     Dates: start: 20070511
  2. COREG CR [Suspect]
     Indication: BLOOD PRESSURE FLUCTUATION
     Dosage: 10MG PER DAY
     Route: 048
     Dates: start: 20070401, end: 20070501
  3. NEXIUM [Concomitant]
  4. LIPITOR [Concomitant]
  5. FLOMAX [Concomitant]
  6. ZOLOFT [Concomitant]
  7. ASPIRIN [Concomitant]

REACTIONS (3)
  - BLOOD PRESSURE FLUCTUATION [None]
  - DRUG INEFFECTIVE [None]
  - DYSPHONIA [None]
